FAERS Safety Report 8959763 (Version 1)
Quarter: 2012Q4

REPORT INFORMATION
  Report Type: 
  Country: US (occurrence: US)
  Receive Date: 20121212
  Receipt Date: 20121212
  Transmission Date: 20130627
  Serious: Yes (Hospitalization)
  Sender: FDA-Public Use
  Company Number: PHEH2012US024284

PATIENT
  Age: 53 Year
  Sex: Female

DRUGS (1)
  1. CLOZARIL [Suspect]
     Indication: SCHIZOAFFECTIVE DISORDER
     Dosage: Daily
     Route: 048
     Dates: start: 20101205

REACTIONS (2)
  - Pneumonia viral [Unknown]
  - Sepsis [Unknown]
